FAERS Safety Report 7803416-6 (Version None)
Quarter: 2011Q4

REPORT INFORMATION
  Report Type: 
  Country: None (occurrence: None)
  Receive Date: 20111007
  Receipt Date: 20110421
  Transmission Date: 20120403
  Serious: No
  Sender: FDA-Public Use
  Company Number: US-BAYER-2011-035893

PATIENT
  Age: 75 Year
  Sex: Male

DRUGS (13)
  1. VITAMIN D [Concomitant]
  2. TAZTIA XT [Interacting]
     Dosage: 300 MG, QD
     Dates: start: 20110101
  3. CRESTOR [Concomitant]
     Dosage: 20 MG, UNK
  4. CENTRUM SILVER [Concomitant]
  5. SYNTHROID [Concomitant]
     Dosage: UNK
  6. HYDROCHLOROTHIAZIDE [Concomitant]
     Dosage: 12.5 MG, UNK
  7. VITAMIN B-12 [Concomitant]
  8. FISH OIL [Concomitant]
  9. LEVITRA [Suspect]
     Indication: ERECTILE DYSFUNCTION
     Dosage: 10 MG, UNK
     Dates: start: 20100801
  10. ASCORBIC ACID [Concomitant]
  11. ANDROGEL [Concomitant]
     Dosage: 1 %, 3 PUMPS DAILY
  12. ASPIRIN [Concomitant]
     Dosage: 81 MG, UNK
  13. PRILOSEC [Concomitant]

REACTIONS (3)
  - ERECTILE DYSFUNCTION [None]
  - HEADACHE [None]
  - DRUG INTERACTION [None]
